FAERS Safety Report 17620036 (Version 1)
Quarter: 2020Q2

REPORT INFORMATION
  Report Type: Spontaneous
  Country: FR (occurrence: FR)
  Receive Date: 20200402
  Receipt Date: 20200402
  Transmission Date: 20200713
  Serious: Yes (Hospitalization)
  Sender: FDA-Public Use
  Company Number: FR-ELI_LILLY_AND_COMPANY-FR202003010912

PATIENT
  Age: 68 Year
  Sex: Male

DRUGS (6)
  1. THERALENE [Suspect]
     Active Substance: TRIMEPRAZINE
     Indication: BIPOLAR DISORDER
     Dosage: 10 MG, DAILY
     Route: 048
     Dates: end: 20200311
  2. LOXAPAC [LOXAPINE SUCCINATE] [Suspect]
     Active Substance: LOXAPINE SUCCINATE
     Indication: BIPOLAR DISORDER
     Dosage: 15-15-15-20 GOUTTES/JOUR
     Route: 048
     Dates: end: 20200311
  3. PERINDOPRIL [Suspect]
     Active Substance: PERINDOPRIL
     Indication: HYPERTENSION
     Dosage: 4 MG, DAILY
     Route: 048
     Dates: end: 20200311
  4. TEGRETOL [Suspect]
     Active Substance: CARBAMAZEPINE
     Indication: BIPOLAR DISORDER
     Dosage: 800 MG, DAILY
     Route: 048
     Dates: end: 20200311
  5. ZYPREXA [Suspect]
     Active Substance: OLANZAPINE
     Indication: BIPOLAR DISORDER
     Dosage: 20 MG, DAILY
     Route: 048
     Dates: end: 20200311
  6. OMEPRAZOLE. [Suspect]
     Active Substance: OMEPRAZOLE
     Indication: PRODUCT USED FOR UNKNOWN INDICATION
     Dosage: 20 MG, DAILY
     Route: 048
     Dates: end: 20200311

REACTIONS (1)
  - Hyponatraemia [Recovering/Resolving]

NARRATIVE: CASE EVENT DATE: 20200312
